FAERS Safety Report 18257317 (Version 1)
Quarter: 2020Q3

REPORT INFORMATION
  Report Type: Spontaneous
  Country: AU (occurrence: AU)
  Receive Date: 20200911
  Receipt Date: 20200911
  Transmission Date: 20201103
  Serious: Yes (Life-Threatening, Hospitalization)
  Sender: FDA-Public Use
  Company Number: AU-MYLANLABS-2020M1077092

PATIENT
  Sex: Male

DRUGS (2)
  1. SOTALOL. [Suspect]
     Active Substance: SOTALOL
     Indication: ATRIAL FIBRILLATION
     Dosage: UNK
  2. ARATAC [Suspect]
     Active Substance: AMIODARONE HYDROCHLORIDE
     Indication: PRODUCT USED FOR UNKNOWN INDICATION
     Dosage: UNK

REACTIONS (3)
  - Cardiac dysfunction [Unknown]
  - Abnormal dreams [Unknown]
  - Infection [Unknown]

NARRATIVE: CASE EVENT DATE: 2013
